FAERS Safety Report 6164466-1 (Version None)
Quarter: 2009Q2

REPORT INFORMATION
  Report Type: 
  Country: None (occurrence: None)
  Receive Date: 20090421
  Receipt Date: 20090410
  Transmission Date: 20091009
  Serious: Yes (Other)
  Sender: FDA-Public Use
  Company Number: 2009S1006410

PATIENT
  Age: 52 Year
  Sex: Female
  Weight: 68.0396 kg

DRUGS (10)
  1. FENTANYL TRANSDERMAL SYSTEM [Suspect]
     Indication: PAIN
     Dosage: 25 UG; EVERY HOUR; TRANSDERMAL
     Route: 062
     Dates: start: 20090101, end: 20090408
  2. SPIRIVA (CON.) [Concomitant]
  3. ADVAIR (CON.) [Concomitant]
  4. ALBUTEROL (CON.) [Concomitant]
  5. IBUPROFEN (CON.) [Concomitant]
  6. NOLVADEX (CON.) [Concomitant]
  7. CLARITIN /00917501/ (CON.) [Concomitant]
  8. LEXAPRO (CON.) [Concomitant]
  9. MIDODRINE (CON.) [Concomitant]
  10. TEMAZEPAM (CON.) [Concomitant]

REACTIONS (11)
  - BLOOD PRESSURE INCREASED [None]
  - CONFUSIONAL STATE [None]
  - DRUG INEFFECTIVE [None]
  - HYPERHIDROSIS [None]
  - MEMORY IMPAIRMENT [None]
  - MUSCLE SPASMS [None]
  - MUSCLE SPASTICITY [None]
  - OEDEMA PERIPHERAL [None]
  - PAIN IN EXTREMITY [None]
  - VASOCONSTRICTION [None]
  - WITHDRAWAL SYNDROME [None]
